FAERS Safety Report 4562620-3 (Version None)
Quarter: 2005Q1

REPORT INFORMATION
  Report Type: 
  Country: None (occurrence: None)
  Receive Date: 20050124
  Receipt Date: 20050110
  Transmission Date: 20050727
  Serious: Yes (Hospitalization, Disabling)
  Sender: FDA-Public Use
  Company Number: HQWYE651508OCT04

PATIENT
  Age: 23 Year
  Sex: Female
  Weight: 54.48 kg

DRUGS (15)
  1. EFFEXOR XR [Suspect]
     Indication: FIBROMYALGIA
     Dosage: ORAL
     Route: 048
     Dates: start: 20030818, end: 20030925
  2. PROAMATINE [Concomitant]
  3. FLORINEF [Concomitant]
  4. TOPAMAX [Concomitant]
  5. DIAZEPAM [Concomitant]
  6. BUTALBITAL, ACETAMINOPHEN + CAFFEINE (BUTALBITAL/PARACETAMOL) [Concomitant]
  7. POTASSIUM CHLORIDE [Concomitant]
  8. SINGULAIR [Concomitant]
  9. FLONASE [Concomitant]
  10. ALLEGRA [Concomitant]
  11. AFRIN (AMINOACETIC ACID/ BENZALKONIUM CHLORIDE/OXYMETAZOLINE HYDROCHLO [Concomitant]
  12. PHAZYME (DIASTASE/DIMETICONE, ACTIVATED/PANCREATIC/PEPSIN) [Concomitant]
  13. LOESTRIN (ETHINYLESTRADIOL/NORETHISTERONE ACETATE) [Concomitant]
  14. AMBIEN [Concomitant]
  15. VICODIN [Concomitant]

REACTIONS (24)
  - ACTIVITIES OF DAILY LIVING IMPAIRED [None]
  - ANTI-THYROID ANTIBODY POSITIVE [None]
  - BLOOD PRESSURE IMMEASURABLE [None]
  - COMA [None]
  - COORDINATION ABNORMAL [None]
  - DYSPNOEA [None]
  - FALL [None]
  - FEELING HOT [None]
  - GENERALISED ANXIETY DISORDER [None]
  - HYPERSOMNIA [None]
  - LOSS OF CONSCIOUSNESS [None]
  - MEMORY IMPAIRMENT [None]
  - MIGRAINE [None]
  - NAUSEA [None]
  - ORTHOSTATIC HYPOTENSION [None]
  - PALPITATIONS [None]
  - PANIC ATTACK [None]
  - PANIC DISORDER [None]
  - PLATELET COUNT INCREASED [None]
  - SINUS TACHYCARDIA [None]
  - SOMNOLENCE [None]
  - SYNCOPE [None]
  - TACHYCARDIA [None]
  - THYROID DISORDER [None]
